FAERS Safety Report 9189527 (Version 1)
Quarter: 2013Q1

REPORT INFORMATION
  Report Type: Spontaneous
  Country: US (occurrence: US)
  Receive Date: 20130326
  Receipt Date: 20130326
  Transmission Date: 20140127
  Serious: Yes (Other)
  Sender: FDA-Public Use
  Company Number: US-ELI_LILLY_AND_COMPANY-US201303005899

PATIENT
  Sex: Female

DRUGS (1)
  1. FORTEO [Suspect]
     Indication: OSTEOPOROSIS
     Dosage: UNK
     Dates: start: 201109, end: 201301

REACTIONS (4)
  - Skin cancer [Unknown]
  - Basal cell carcinoma [Unknown]
  - Pain [Recovered/Resolved]
  - Constipation [Recovering/Resolving]
